FAERS Safety Report 4676640-1 (Version None)
Quarter: 2005Q2

REPORT INFORMATION
  Report Type: 
  Country: None (occurrence: None)
  Receive Date: 20050526
  Receipt Date: 20050513
  Transmission Date: 20051028
  Serious: Yes (Life-Threatening, Hospitalization, Other)
  Sender: FDA-Public Use
  Company Number: 2005059253

PATIENT
  Age: 72 Year
  Sex: Female
  Weight: 30.8 kg

DRUGS (7)
  1. SULPERAZON                      (SULBACTAM, CEFOPERAZONE) [Suspect]
     Indication: CHOLANGITIS
     Dosage: 1 GRAM (1 GRAM, 1 IN 1 D), INTRAVENOUS
     Route: 042
     Dates: start: 20040921, end: 20050406
  2. TAKEPRON       (LANSOPRAZOLE) [Concomitant]
  3. MAGNESIUM OXIDE        (MAGNESIUM OXIDE) [Concomitant]
  4. LOXONIN            (LOXOPROFEN SODIUM) [Concomitant]
  5. GLAKAY             (MENATETRENONE) [Concomitant]
  6. URSODIOL [Concomitant]
  7. ALLOPURINOL [Concomitant]

REACTIONS (7)
  - ANAPHYLACTIC SHOCK [None]
  - BACK PAIN [None]
  - CHEST PAIN [None]
  - CHOLANGITIS [None]
  - DEPRESSED LEVEL OF CONSCIOUSNESS [None]
  - HYPOAESTHESIA [None]
  - JAUNDICE CHOLESTATIC [None]
